FAERS Safety Report 11680430 (Version 2)
Quarter: 2015Q4

REPORT INFORMATION
  Report Type: Spontaneous
  Country: US (occurrence: US)
  Receive Date: 20151027
  Receipt Date: 20151104
  Transmission Date: 20160304
  Serious: No
  Sender: FDA-Public Use
  Company Number: US-ELI_LILLY_AND_COMPANY-US201008008726

PATIENT
  Age: 67 Year
  Sex: Female

DRUGS (2)
  1. FORTEO [Suspect]
     Active Substance: TERIPARATIDE
  2. FORTEO [Suspect]
     Active Substance: TERIPARATIDE
     Dosage: UNK, UNKNOWN

REACTIONS (11)
  - Injection site pain [Unknown]
  - Weight decreased [Unknown]
  - Feeling abnormal [Unknown]
  - Joint dislocation [Unknown]
  - Back pain [Not Recovered/Not Resolved]
  - Urinary tract infection [Unknown]
  - Myasthenia gravis [Unknown]
  - Chest X-ray abnormal [Unknown]
  - Vitamin D decreased [Unknown]
  - Eyelid disorder [Unknown]
  - Limb discomfort [Unknown]
